FAERS Safety Report 8761882 (Version 1)
Quarter: 2012Q4

REPORT INFORMATION
  Report Type: Report from Study
  Country: DE (occurrence: DE)
  Receive Date: 20120830
  Receipt Date: 20120830
  Transmission Date: 20130627
  Serious: Yes (Hospitalization)
  Sender: FDA-Public Use
  Company Number: DE-PFIZER INC-2012212649

PATIENT
  Age: 51 Year
  Sex: Male

DRUGS (5)
  1. RAMIPRIL [Suspect]
     Indication: HYPERTENSION
     Dosage: UNK
     Route: 048
     Dates: end: 20120420
  2. L-THYROXIN [Concomitant]
     Dosage: UNK
     Dates: start: 20120121
  3. SIMVASTATIN [Concomitant]
     Dosage: UNK
  4. CONCOR [Concomitant]
     Dosage: UNK
  5. ASA [Concomitant]
     Dosage: UNK

REACTIONS (2)
  - Retinal detachment [Recovered/Resolved]
  - Cough [Recovered/Resolved]
